FAERS Safety Report 8289816-1 (Version None)
Quarter: 2012Q2

REPORT INFORMATION
  Report Type: 
  Country: None (occurrence: None)
  Receive Date: 20120417
  Receipt Date: 20120410
  Transmission Date: 20120825
  Serious: No
  Sender: FDA-Public Use
  Company Number: US-PFIZER INC-2012062536

PATIENT
  Sex: Female
  Weight: 72 kg

DRUGS (2)
  1. TRIAZOLAM [Suspect]
     Indication: INSOMNIA
     Dosage: 0.25 MG, AS NEEDED
     Route: 048
     Dates: start: 20120201, end: 20120201
  2. LEVOTHYROXINE [Concomitant]
     Indication: HYPOTHYROIDISM
     Dosage: UNK

REACTIONS (1)
  - DRUG INEFFECTIVE [None]
